FAERS Safety Report 19734447 (Version 2)
Quarter: 2021Q3

REPORT INFORMATION
  Report Type: Spontaneous
  Country: JP (occurrence: JP)
  Receive Date: 20210823
  Receipt Date: 20210909
  Transmission Date: 20211014
  Serious: Yes (Death, Other)
  Sender: FDA-Public Use
  Company Number: JP-ASTELLAS-2021JP016208

PATIENT
  Age: 93 Year
  Sex: Male

DRUGS (8)
  1. ADALAT CC [Concomitant]
     Active Substance: NIFEDIPINE
     Indication: PRODUCT USED FOR UNKNOWN INDICATION
     Dosage: 20 MG/DAY, UNKNOWN FREQ.
     Route: 048
     Dates: end: 20210804
  2. AZILVA [Concomitant]
     Active Substance: AZILSARTAN KAMEDOXOMIL
     Indication: PRODUCT USED FOR UNKNOWN INDICATION
     Dosage: 20 MG/DAY, UNKNOWN FREQ.
     Route: 048
     Dates: end: 20210804
  3. ASPIRIN. [Concomitant]
     Active Substance: ASPIRIN
     Indication: PRODUCT USED FOR UNKNOWN INDICATION
     Dosage: UNK UNK, UNKNOWN FREQ.
     Route: 065
  4. ZOPICLONE [Concomitant]
     Active Substance: ZOPICLONE
     Indication: PRODUCT USED FOR UNKNOWN INDICATION
     Dosage: 10 MG/DAY, UNKNOWN FREQ.
     Route: 048
  5. FUNGUARD [Suspect]
     Active Substance: MICAFUNGIN SODIUM
     Indication: CANDIDA INFECTION
     Dosage: 100 MG/DAY, UNKNOWN FREQ.
     Route: 041
     Dates: start: 20210702, end: 20210804
  6. NEXIUM [Concomitant]
     Active Substance: ESOMEPRAZOLE MAGNESIUM
     Indication: PRODUCT USED FOR UNKNOWN INDICATION
     Dosage: 20 MG/DAY, UNKNOWN FREQ.
     Route: 048
     Dates: end: 20210804
  7. PRODIF [Concomitant]
     Active Substance: FOSFLUCONAZOLE
     Indication: PRODUCT USED FOR UNKNOWN INDICATION
     Dosage: 200 UNKNOWN UNITS, UNKNOWN FREQ.
     Route: 041
     Dates: start: 20210523, end: 20210701
  8. AZOSEMIDE [Concomitant]
     Active Substance: AZOSEMIDE
     Indication: PRODUCT USED FOR UNKNOWN INDICATION
     Dosage: 30 MG/DAY, UNKNOWN FREQ.
     Route: 048
     Dates: end: 20210804

REACTIONS (1)
  - Pneumonia [Fatal]

NARRATIVE: CASE EVENT DATE: 20210719
